FAERS Safety Report 11116162 (Version 1)
Quarter: 2015Q2

REPORT INFORMATION
  Report Type: Spontaneous
  Country: US (occurrence: None)
  Receive Date: 20150514
  Receipt Date: 20150514
  Transmission Date: 20150821
  Serious: Yes (Hospitalization)
  Sender: FDA-Public Use
  Company Number: None

PATIENT
  Age: 79 Year
  Sex: Male
  Weight: 71.9 kg

DRUGS (1)
  1. RAMUCIRUMAB [Suspect]
     Active Substance: RAMUCIRUMAB
     Indication: HAEMATOLOGICAL MALIGNANCY
     Dosage: 10 MG  ONCE  IV
     Route: 042
     Dates: start: 20150221, end: 20150317

REACTIONS (4)
  - Fall [None]
  - Urinary retention [None]
  - Hypophagia [None]
  - Oliguria [None]

NARRATIVE: CASE EVENT DATE: 20150317
